FAERS Safety Report 10472843 (Version 1)
Quarter: 2014Q3

REPORT INFORMATION
  Report Type: Spontaneous
  Country: GB (occurrence: None)
  Receive Date: 20140922
  Receipt Date: 20140922
  Transmission Date: 20150326
  Serious: Yes (Other)
  Sender: FDA-Public Use
  Company Number: FK201403716

PATIENT
  Age: 66 Year
  Sex: Female
  Weight: 68.4 kg

DRUGS (4)
  1. METHOTREXATE (MANUFACTURER UNKNOWN) (METHOTREXATE) (METHOTREXATE) [Suspect]
     Active Substance: METHOTREXATE
     Indication: PRODUCT USED FOR UNKNOWN INDICATION
  2. OMEPRAZOLE (OMEPRAZOLE) [Concomitant]
     Active Substance: OMEPRAZOLE
  3. HUMIRA [Suspect]
     Active Substance: ADALIMUMAB
     Indication: PSORIASIS
     Dosage: 40 MG, 1 IN 2 WK
     Route: 058
     Dates: start: 20130605, end: 20130716
  4. SERETIDE [Concomitant]
     Active Substance: FLUTICASONE FUROATE\SALMETEROL XINAFOATE

REACTIONS (8)
  - Rash [None]
  - Drug ineffective [None]
  - Drug specific antibody present [None]
  - Pemphigoid [None]
  - Discomfort [None]
  - Blister [None]
  - Rash pruritic [None]
  - Rash vesicular [None]
